FAERS Safety Report 9511853 (Version 1)
Quarter: 2013Q1

REPORT INFORMATION
  Report Type: Spontaneous
  Country: US (occurrence: None)
  Receive Date: 20130305
  Receipt Date: 20130305
  Transmission Date: 20140127
  Serious: Yes (Other)
  Sender: FDA-Public Use
  Company Number: 163-21880-12103569

PATIENT
  Age: 75 Year
  Sex: Male
  Weight: 106.6 kg

DRUGS (7)
  1. REVLIMID [Suspect]
     Indication: PLASMA CELL MYELOMA
     Dosage: 10 MG, 21 IN 21 D, PO
     Route: 048
     Dates: start: 20121004
  2. ADULT LOW DOSE ASPIRIN (OTHER THERAPEUTIC PRODUCTS) (UNKNOWN) [Concomitant]
  3. DETROL (TOLTERODINE L-TARTRATE) (TABLETS) [Concomitant]
  4. HYDROCHLOROTHIAZIDE) (HYDROCHLOROTHIAZIDE) (UNKNOWN) [Concomitant]
  5. PLETAL (CILOSTAZOL) (TABLETS) [Concomitant]
  6. PREDNISONE (PREDNISONE) (TABLETS) [Concomitant]
  7. VYTORIN (INEGY) (UNKNOWN) [Concomitant]

REACTIONS (2)
  - Rash generalised [None]
  - Pruritus [None]
